FAERS Safety Report 17739535 (Version 1)
Quarter: 2020Q2

REPORT INFORMATION
  Report Type: Spontaneous
  Country: US (occurrence: US)
  Receive Date: 20200504
  Receipt Date: 20200504
  Transmission Date: 20200714
  Serious: No
  Sender: FDA-Public Use
  Company Number: US-TEVA-2020-US-1223170

PATIENT
  Sex: Female

DRUGS (2)
  1. KETAMINE [Interacting]
     Active Substance: KETAMINE
     Indication: DEPRESSION
  2. AJOVY [Suspect]
     Active Substance: FREMANEZUMAB-VFRM
     Route: 065

REACTIONS (1)
  - Inhibitory drug interaction [Unknown]
